FAERS Safety Report 18246491 (Version 23)
Quarter: 2025Q2

REPORT INFORMATION
  Report Type: Report from Study
  Country: US (occurrence: US)
  Receive Date: 20200909
  Receipt Date: 20250402
  Transmission Date: 20250717
  Serious: Yes (Other)
  Sender: TAKEDA
  Company Number: US-SHIRE-US202029099

PATIENT
  Age: 23 Year
  Sex: Male

DRUGS (3)
  1. ADVATE [Suspect]
     Active Substance: ANTIHEMOPHILIC FACTOR, HUMAN RECOMBINANT
     Indication: Haemorrhage
  2. ADVATE [Suspect]
     Active Substance: ANTIHEMOPHILIC FACTOR, HUMAN RECOMBINANT
  3. ADVATE [Suspect]
     Active Substance: ANTIHEMOPHILIC FACTOR, HUMAN RECOMBINANT

REACTIONS (12)
  - Haemarthrosis [Recovered/Resolved]
  - Head injury [Recovered/Resolved]
  - Contusion [Unknown]
  - Muscle haemorrhage [Recovered/Resolved]
  - Traumatic haemorrhage [Recovering/Resolving]
  - Pain in extremity [Unknown]
  - Muscle injury [Unknown]
  - Muscle strain [Not Recovered/Not Resolved]
  - Animal bite [Unknown]
  - Arthropathy [Unknown]
  - Limb injury [Recovered/Resolved]
  - Arthralgia [Unknown]

NARRATIVE: CASE EVENT DATE: 20200903
